FAERS Safety Report 11766701 (Version 2)
Quarter: 2016Q2

REPORT INFORMATION
  Report Type: Spontaneous
  Country: VE (occurrence: VE)
  Receive Date: 20151123
  Receipt Date: 20160606
  Transmission Date: 20160815
  Serious: Yes (Hospitalization)
  Sender: FDA-Public Use
  Company Number: VE-ORION CORPORATION ORION PHARMA-ENTC2015-0675

PATIENT
  Sex: Male

DRUGS (7)
  1. STALEVO [Suspect]
     Active Substance: CARBIDOPA\ENTACAPONE\LEVODOPA
     Dosage: STRENGTH: 50 MG, 3 DF
     Route: 048
     Dates: start: 201511
  2. NORVASC [Concomitant]
     Active Substance: AMLODIPINE BESYLATE
     Route: 065
  3. STALEVO [Suspect]
     Active Substance: CARBIDOPA\ENTACAPONE\LEVODOPA
     Indication: PARKINSON^S DISEASE
     Route: 048
     Dates: start: 2011
  4. STALEVO [Suspect]
     Active Substance: CARBIDOPA\ENTACAPONE\LEVODOPA
     Route: 048
     Dates: start: 2013
  5. UROCIT [Concomitant]
     Route: 065
     Dates: start: 201511
  6. GLUCOFAGE [Concomitant]
     Route: 065
  7. SINEMET [Concomitant]
     Active Substance: CARBIDOPA\LEVODOPA
     Route: 065

REACTIONS (10)
  - Gait disturbance [Unknown]
  - Insomnia [Not Recovered/Not Resolved]
  - Tremor [Not Recovered/Not Resolved]
  - Incorrect dose administered [Unknown]
  - Malaise [Not Recovered/Not Resolved]
  - Nephrolithiasis [Unknown]
  - Hallucination [Not Recovered/Not Resolved]
  - Musculoskeletal stiffness [Unknown]
  - Dysstasia [Not Recovered/Not Resolved]
  - Staring [Not Recovered/Not Resolved]
